FAERS Safety Report 8375720-7 (Version None)
Quarter: 2012Q2

REPORT INFORMATION
  Report Type: 
  Country: None (occurrence: None)
  Receive Date: 20120522
  Receipt Date: 20120515
  Transmission Date: 20120825
  Serious: Yes (Other)
  Sender: FDA-Public Use
  Company Number: US-PFIZER INC-2011316582

PATIENT
  Sex: Male
  Weight: 13.6 kg

DRUGS (2)
  1. NEXIUM [Concomitant]
     Dosage: 20 MG, 1X/DAY
     Route: 048
     Dates: start: 20090101
  2. GENOTROPIN [Suspect]
     Indication: DWARFISM
     Dosage: 0.5 MG, 1X/DAY
     Route: 058
     Dates: start: 20090201, end: 20111003

REACTIONS (2)
  - INTRACRANIAL PRESSURE INCREASED [None]
  - PAPILLOEDEMA [None]
